FAERS Safety Report 6371227-7 (Version None)
Quarter: 2009Q3

REPORT INFORMATION
  Report Type: 
  Country: None (occurrence: None)
  Receive Date: 20090923
  Receipt Date: 20070614
  Transmission Date: 20100115
  Serious: Yes (Hospitalization, Other)
  Sender: FDA-Public Use
  Company Number: US-ASTRAZENECA-2006UW27488

PATIENT
  Age: 10766 Day
  Sex: Male
  Weight: 83.9 kg

DRUGS (15)
  1. SEROQUEL [Suspect]
     Indication: BIPOLAR DISORDER
     Dosage: 25 MG TO 600 MG
     Route: 048
     Dates: start: 20060107
  2. SEROQUEL [Suspect]
     Route: 048
     Dates: start: 20060101, end: 20061001
  3. GEODON [Concomitant]
  4. ZOLOFT [Concomitant]
     Indication: MAJOR DEPRESSION
     Dosage: 25 MG TO 100 MG
     Route: 048
     Dates: start: 20060806
  5. TRAZODONE [Concomitant]
     Indication: ANXIETY
     Route: 048
     Dates: start: 20060806
  6. LAMICTAL [Concomitant]
     Dosage: 50 MG TO 200 MG
     Route: 048
     Dates: start: 20060803
  7. WELLBUTRIN [Concomitant]
     Route: 048
     Dates: start: 20060308
  8. KLONOPIN [Concomitant]
     Dosage: 1.5 MG TO 2 MG
     Route: 048
     Dates: start: 20060206
  9. ATIVAN [Concomitant]
     Route: 048
     Dates: start: 20051221
  10. SINGULAIR [Concomitant]
     Route: 048
     Dates: start: 20051129
  11. NEURONTIN [Concomitant]
     Route: 048
     Dates: start: 20070619
  12. LEXAPRO [Concomitant]
     Route: 048
     Dates: start: 20070501
  13. CELEBREX [Concomitant]
     Route: 048
     Dates: start: 20070413
  14. VALTREX [Concomitant]
     Route: 048
     Dates: start: 20041026
  15. XANAX [Concomitant]
     Indication: ANXIETY
     Dosage: 2 MG EVERY 8 HOURS
     Route: 048
     Dates: start: 20071221

REACTIONS (1)
  - TARDIVE DYSKINESIA [None]
